FAERS Safety Report 24170310 (Version 1)
Quarter: 2024Q3

REPORT INFORMATION
  Report Type: Spontaneous
  Country: US (occurrence: US)
  Receive Date: 20240803
  Receipt Date: 20240803
  Transmission Date: 20241016
  Serious: Yes (Hospitalization, Other)
  Sender: MANKIND PHARMA
  Company Number: US-MankindUS-000225

PATIENT
  Age: 47 Year
  Sex: Male
  Weight: 133.9 kg

DRUGS (1)
  1. LIDOCAINE HYDROCHLORIDE [Suspect]
     Active Substance: LIDOCAINE HYDROCHLORIDE
     Indication: Anaesthesia
     Dosage: 20 ML OF 10 MG/ML AND 6 ML OF 20 MG/ML, INJECTION WITHOUT EPINEPHRINE, TOTAL 320 MG

REACTIONS (1)
  - Neurotoxicity [Recovered/Resolved]
